FAERS Safety Report 12783443 (Version 1)
Quarter: 2016Q3

REPORT INFORMATION
  Report Type: Spontaneous
  Country: US (occurrence: US)
  Receive Date: 20160927
  Receipt Date: 20160927
  Transmission Date: 20161109
  Serious: Yes (Disabling, Other)
  Sender: FDA-Public Use
  Company Number: None

PATIENT
  Age: 62 Year
  Sex: Female
  Weight: 78.75 kg

DRUGS (1)
  1. GADOLINIUM [Suspect]
     Active Substance: GADOLINIUM

REACTIONS (3)
  - Pruritus [None]
  - Rash erythematous [None]
  - Skin disorder [None]

NARRATIVE: CASE EVENT DATE: 20151109
